FAERS Safety Report 13949764 (Version 1)
Quarter: 2017Q3

REPORT INFORMATION
  Report Type: Spontaneous
  Country: DE (occurrence: DE)
  Receive Date: 20170908
  Receipt Date: 20170908
  Transmission Date: 20171128
  Serious: Yes (Death, Life-Threatening)
  Sender: FDA-Public Use
  Company Number: DE-MYLANLABS-2017M1056718

PATIENT
  Age: 54 Year

DRUGS (18)
  1. LEPONEX [Suspect]
     Active Substance: CLOZAPINE
     Dosage: 650 MG, QD
     Dates: start: 201509
  2. LEPONEX [Suspect]
     Active Substance: CLOZAPINE
     Dosage: 350 MG, QD
     Dates: start: 20160222
  3. FORMOTEROL-RATIOPHARM [Concomitant]
     Dosage: DAILY DOSE: 2 DF DOSAGE FORM EVERY DAY
  4. MAGNESIUM VERLA BRAUSETABLETTEN [Concomitant]
     Dosage: 6 DF, QD
     Dates: start: 20160212, end: 20160218
  5. MAGNESIUM VERLA BRAUSETABLETTEN [Concomitant]
     Dosage: 2 DF, QD
     Dates: start: 20160219
  6. LEPONEX [Suspect]
     Active Substance: CLOZAPINE
     Dosage: 400 MG, QD
     Dates: start: 201510
  7. LEPONEX [Suspect]
     Active Substance: CLOZAPINE
     Dosage: 250 MG, QD
     Dates: start: 20160108
  8. FLUANXOL                           /00109702/ [Concomitant]
     Active Substance: FLUPENTIXOL
     Dosage: 15 MG, QD
     Dates: start: 20160204
  9. PANTOPRAZOL [Concomitant]
     Active Substance: PANTOPRAZOLE SODIUM
     Dosage: 40 MG, QD
  10. LEPONEX [Suspect]
     Active Substance: CLOZAPINE
     Dosage: 200 MG, QD
     Dates: start: 201512
  11. HALDOL [Concomitant]
     Active Substance: HALOPERIDOL
     Dosage: 7,5 - 20 MG
     Dates: start: 201408, end: 201510
  12. LEPONEX [Suspect]
     Active Substance: CLOZAPINE
     Dosage: 300 MG, QD
     Dates: start: 201511
  13. LEPONEX [Suspect]
     Active Substance: CLOZAPINE
     Dosage: DAILY DOSE UP TO 275 - 325 MG
     Dates: start: 20160216, end: 20160221
  14. HALDOL [Concomitant]
     Active Substance: HALOPERIDOL
     Dosage: 15 MG, QD
     Dates: start: 201510
  15. LEPONEX [Suspect]
     Active Substance: CLOZAPINE
     Indication: PRODUCT USED FOR UNKNOWN INDICATION
     Dosage: DAILY DOSE UP TO 500 MG
     Dates: start: 201403
  16. MAGNESIUM VERLA BRAUSETABLETTEN [Concomitant]
     Dosage: 1 DF, QD
     Dates: start: 20160220
  17. FLUANXOL                           /00109702/ [Concomitant]
     Active Substance: FLUPENTIXOL
     Dosage: 12 MG, QD
     Dates: start: 20160226
  18. TAVOR (LORAZEPAM) [Concomitant]
     Active Substance: LORAZEPAM
     Dosage: 1.5 MG, QD
     Dates: start: 20160208

REACTIONS (1)
  - Completed suicide [Fatal]

NARRATIVE: CASE EVENT DATE: 20160303
